FAERS Safety Report 18944178 (Version 1)
Quarter: 2021Q1

REPORT INFORMATION
  Report Type: Spontaneous
  Country: CA (occurrence: CA)
  Receive Date: 20210226
  Receipt Date: 20210226
  Transmission Date: 20210420
  Serious: Yes (Life-Threatening)
  Sender: FDA-Public Use
  Company Number: NVSC2021CA043500

PATIENT
  Age: 23 Year
  Sex: Male

DRUGS (18)
  1. DOCETAXEL. [Suspect]
     Active Substance: DOCETAXEL
     Indication: NEOPLASM RECURRENCE
     Route: 065
  2. ETOPOSIDE. [Suspect]
     Active Substance: ETOPOSIDE
     Indication: METASTASES TO PANCREAS
  3. GEMCITABINE HCL [Suspect]
     Active Substance: GEMCITABINE HYDROCHLORIDE
     Indication: NEOPLASM RECURRENCE
     Route: 065
  4. TOPOTECAN [Suspect]
     Active Substance: TOPOTECAN HYDROCHLORIDE
     Indication: METASTASES TO PANCREAS
  5. OLARATUMAB [Suspect]
     Active Substance: OLARATUMAB
     Indication: UNDIFFERENTIATED SARCOMA
     Route: 042
  6. DOXORUBICIN HYDROCHLORIDE. [Suspect]
     Active Substance: DOXORUBICIN HYDROCHLORIDE
     Indication: METASTASES TO PANCREAS
  7. IFEX [Suspect]
     Active Substance: IFOSFAMIDE
     Indication: UNDIFFERENTIATED SARCOMA
     Dosage: (FORMULATION: POWDER FOR SOLUTION)
     Route: 042
  8. PROCYTOX [Suspect]
     Active Substance: CYCLOPHOSPHAMIDE
     Indication: METASTASES TO PANCREAS
  9. ETOPOSIDE. [Suspect]
     Active Substance: ETOPOSIDE
     Indication: UNDIFFERENTIATED SARCOMA
     Route: 065
  10. VINCRISTINE SULFATE. [Suspect]
     Active Substance: VINCRISTINE SULFATE
     Indication: UNDIFFERENTIATED SARCOMA
     Route: 065
  11. VINCRISTINE SULFATE. [Suspect]
     Active Substance: VINCRISTINE SULFATE
     Indication: METASTASES TO PANCREAS
  12. VOTRIENT [Suspect]
     Active Substance: PAZOPANIB HYDROCHLORIDE
     Indication: METASTASES TO PANCREAS
  13. DOCETAXEL. [Suspect]
     Active Substance: DOCETAXEL
     Indication: METASTASES TO PANCREAS
  14. PROCYTOX [Suspect]
     Active Substance: CYCLOPHOSPHAMIDE
     Indication: UNDIFFERENTIATED SARCOMA
     Route: 042
  15. IFEX [Suspect]
     Active Substance: IFOSFAMIDE
     Indication: METASTASES TO PANCREAS
  16. VOTRIENT [Suspect]
     Active Substance: PAZOPANIB HYDROCHLORIDE
     Indication: UNDIFFERENTIATED SARCOMA
     Route: 065
  17. DOXORUBICIN HYDROCHLORIDE. [Suspect]
     Active Substance: DOXORUBICIN HYDROCHLORIDE
     Indication: UNDIFFERENTIATED SARCOMA
     Route: 065
  18. TOPOTECAN [Suspect]
     Active Substance: TOPOTECAN HYDROCHLORIDE
     Indication: UNDIFFERENTIATED SARCOMA
     Route: 065

REACTIONS (4)
  - Neoplasm recurrence [Unknown]
  - Malignant neoplasm progression [Unknown]
  - Off label use [Unknown]
  - Product use in unapproved indication [Unknown]
